FAERS Safety Report 21652014 (Version 1)
Quarter: 2022Q4

REPORT INFORMATION
  Report Type: Spontaneous
  Country: US (occurrence: US)
  Receive Date: 20221128
  Receipt Date: 20221128
  Transmission Date: 20230112
  Serious: Yes (Other)
  Sender: FDA-Public Use
  Company Number: US-JNJFOC-20221144607

PATIENT
  Sex: Male

DRUGS (2)
  1. INVEGA [Interacting]
     Active Substance: PALIPERIDONE
     Indication: Bipolar disorder
     Route: 048
     Dates: start: 2003
  2. OLANZAPINE [Concomitant]
     Active Substance: OLANZAPINE

REACTIONS (7)
  - Hallucination, auditory [Not Recovered/Not Resolved]
  - Dandruff [Not Recovered/Not Resolved]
  - Dry mouth [Not Recovered/Not Resolved]
  - Eyelid ptosis [Not Recovered/Not Resolved]
  - Psychotic disorder [Not Recovered/Not Resolved]
  - Food interaction [Unknown]
  - Fungal skin infection [Not Recovered/Not Resolved]
